FAERS Safety Report 9664467 (Version 1)
Quarter: 2013Q4

REPORT INFORMATION
  Report Type: Spontaneous
  Country: AU (occurrence: AU)
  Receive Date: 20131101
  Receipt Date: 20131101
  Transmission Date: 20140711
  Serious: Yes (Death)
  Sender: FDA-Public Use
  Company Number: AU-BAXTER-2013BAX042322

PATIENT
  Age: 52 Year
  Sex: Female

DRUGS (1)
  1. DIANEAL 1MMOL CALCIUM IN 1.5% GLUCOSE PERITONEAL DIALYSIS SOLUTION STA [Suspect]
     Indication: PERITONEAL DIALYSIS
     Route: 033
     Dates: end: 20131025

REACTIONS (1)
  - Death [Fatal]
